FAERS Safety Report 7571901-0 (Version None)
Quarter: 2011Q2

REPORT INFORMATION
  Report Type: 
  Country: None (occurrence: None)
  Receive Date: 20110624
  Receipt Date: 20100824
  Transmission Date: 20111010
  Serious: No
  Sender: FDA-Public Use
  Company Number: A0877715A

PATIENT
  Age: 60 Year
  Sex: Male
  Weight: 104.5 kg

DRUGS (2)
  1. VERAMYST [Suspect]
     Indication: MULTIPLE ALLERGIES
     Dosage: 1SPR TWICE PER DAY
     Route: 045
     Dates: start: 20100820, end: 20100828
  2. CLARITIN [Concomitant]
     Dosage: 10MG TWICE PER DAY

REACTIONS (2)
  - FOLLICULITIS [None]
  - STOMATITIS [None]
